FAERS Safety Report 6397857-4 (Version None)
Quarter: 2009Q4

REPORT INFORMATION
  Report Type: 
  Country: None (occurrence: None)
  Receive Date: 20091013
  Receipt Date: 20091002
  Transmission Date: 20100525
  Serious: Yes (Hospitalization)
  Sender: FDA-Public Use
  Company Number: US-BIOGENIDEC-2009BI031063

PATIENT
  Age: 32 Year
  Sex: Female
  Weight: 108 kg

DRUGS (1)
  1. TYSABRI [Suspect]
     Indication: MULTIPLE SCLEROSIS
     Route: 042
     Dates: start: 20090605

REACTIONS (5)
  - ABDOMINAL PAIN [None]
  - INTERVERTEBRAL DISC PROTRUSION [None]
  - MENORRHAGIA [None]
  - MENSTRUATION IRREGULAR [None]
  - METRORRHAGIA [None]
